FAERS Safety Report 19657421 (Version 1)
Quarter: 2021Q3

REPORT INFORMATION
  Report Type: Other
  Country: CN (occurrence: CN)
  Receive Date: 20210804
  Receipt Date: 20210804
  Transmission Date: 20211014
  Serious: Yes (Other)
  Sender: FDA-Public Use
  Company Number: CN-ROCHE-2880425

PATIENT

DRUGS (2)
  1. CAPECITABINE. [Suspect]
     Active Substance: CAPECITABINE
     Indication: COLORECTAL CANCER
     Dosage: THE TOTAL DAILY DOSE WAS DIVIDED INTO MORNING AND EVENING TWICE, SWALLOWED WITH WATER HALF AN HOUR A
     Route: 048
  2. IRINOTECAN HYDROCHLORIDE. [Suspect]
     Active Substance: IRINOTECAN HYDROCHLORIDE
     Indication: COLORECTAL CANCER
     Dosage: INTRAVENOUS DRIP FOR 30? 90 MIN, IT WAS ADMINISTERED ONCE EVERY 2 WEEKS
     Route: 042

REACTIONS (1)
  - Drug intolerance [Unknown]
